FAERS Safety Report 11237613 (Version 1)
Quarter: 2015Q3

REPORT INFORMATION
  Report Type: Spontaneous
  Country: US (occurrence: US)
  Receive Date: 20150703
  Receipt Date: 20150703
  Transmission Date: 20151125
  Serious: Yes (Other)
  Sender: FDA-Public Use
  Company Number: US-AMGEN-USASP2015063610

PATIENT
  Age: 17 Year
  Sex: Male

DRUGS (2)
  1. BRODALUMAB [Concomitant]
     Active Substance: BRODALUMAB
     Dosage: UNK
  2. ENBREL [Suspect]
     Active Substance: ETANERCEPT
     Indication: PSORIASIS
     Dosage: UNK
     Route: 065

REACTIONS (5)
  - Depression [Unknown]
  - Suicidal ideation [Unknown]
  - Drug effect decreased [Unknown]
  - Guttate psoriasis [Unknown]
  - Pharyngitis streptococcal [Unknown]
